FAERS Safety Report 4285068-8 (Version None)
Quarter: 2004Q1

REPORT INFORMATION
  Report Type: 
  Country: None (occurrence: None)
  Receive Date: 20040203
  Receipt Date: 20040203
  Transmission Date: 20041129
  Serious: Yes (Hospitalization)
  Sender: FDA-Public Use
  Company Number: None

PATIENT
  Age: 51 Year
  Sex: Male
  Weight: 119.3 kg

DRUGS (2)
  1. VALPROIC ACID [Suspect]
     Indication: BIPOLAR DISORDER
     Dosage: 1000 MG HS PO
     Route: 048
     Dates: start: 20030701, end: 20040123
  2. FLEXERIL [Suspect]

REACTIONS (2)
  - ABDOMINAL PAIN [None]
  - VOMITING [None]
